FAERS Safety Report 9207292 (Version 2)
Quarter: 2013Q2

REPORT INFORMATION
  Report Type: Spontaneous
  Country: BR (occurrence: BR)
  Receive Date: 20130403
  Receipt Date: 20130506
  Transmission Date: 20140414
  Serious: Yes (Hospitalization, Other)
  Sender: FDA-Public Use
  Company Number: BR-ASTRAZENECA-2013SE17989

PATIENT
  Age: 29909 Day
  Sex: Female

DRUGS (1)
  1. ATACAND [Suspect]
     Indication: HYPERTENSION
     Route: 048
     Dates: end: 201303

REACTIONS (2)
  - Cardiomegaly [Not Recovered/Not Resolved]
  - Cardiac fibrillation [Recovered/Resolved]
